FAERS Safety Report 4401988-5 (Version None)
Quarter: 2004Q3

REPORT INFORMATION
  Report Type: 
  Country: None (occurrence: None)
  Receive Date: 20040719
  Receipt Date: 20040719
  Transmission Date: 20050211
  Serious: Yes (Hospitalization)
  Sender: FDA-Public Use
  Company Number: None

PATIENT
  Age: 76 Year
  Sex: Female
  Weight: 63 kg

DRUGS (12)
  1. TISSEEL VH KIT [Suspect]
     Indication: SURGERY
     Dosage: 2.5ML SPRAY TO EACH GROIN ONCE
     Route: 061
     Dates: start: 20040514
  2. TISSEEL VH KIT [Suspect]
     Indication: VULVAL CANCER
     Dosage: 2.5ML SPRAY TO EACH GROIN ONCE
     Route: 061
     Dates: start: 20040514
  3. ALPRAZOLA [Concomitant]
  4. NAFCILLIN SODIUM [Concomitant]
  5. EVISTA [Concomitant]
  6. LEVOXYL [Concomitant]
  7. VIOXX [Concomitant]
  8. LEVADOPA [Concomitant]
  9. ATENOLOL [Concomitant]
  10. AMBIEN [Concomitant]
  11. PROTONIX [Concomitant]
  12. LORETAB [Concomitant]

REACTIONS (10)
  - CELLULITIS [None]
  - DRUG INEFFECTIVE [None]
  - ERYTHEMA [None]
  - FEELING HOT [None]
  - OEDEMA [None]
  - OEDEMA GENITAL [None]
  - OEDEMA PERIPHERAL [None]
  - PAIN [None]
  - POST PROCEDURAL COMPLICATION [None]
  - PUBIC PAIN [None]
